FAERS Safety Report 8337936-5 (Version None)
Quarter: 2012Q2

REPORT INFORMATION
  Report Type: 
  Country: None (occurrence: None)
  Receive Date: 20120504
  Receipt Date: 20120425
  Transmission Date: 20120825
  Serious: Yes (Other)
  Sender: FDA-Public Use
  Company Number: US-JNJFOC-20120413352

PATIENT
  Age: 66 Year
  Sex: Female
  Weight: 65.77 kg

DRUGS (6)
  1. NEUTROGENA T/GEL THERAPEUTIC SHAMPOO ORIGINAL FORMULA [Suspect]
     Indication: DANDRUFF
     Dosage: EVERY OTHER DAY AS PRESCRIBED BY HER PHYSICIAN
     Route: 061
     Dates: start: 20110701, end: 20120201
  2. SYNTHROID [Concomitant]
     Indication: THYROID DISORDER
     Dosage: 10 YEARS
     Route: 065
     Dates: start: 20020101
  3. EYE MEDICATIONS [Concomitant]
     Indication: EYE DISORDER
     Route: 065
  4. DEPAKOTE [Concomitant]
     Indication: CONVULSION
     Dosage: 5 YEARS
     Route: 065
     Dates: start: 20070101
  5. AZOPT [Concomitant]
     Indication: GLAUCOMA
     Dosage: 4 YEARS
     Route: 065
     Dates: start: 20080101
  6. ALL OTHER THERAPEUTIC PRODUCT [Concomitant]
     Indication: MITRAL VALVE PROLAPSE
     Dosage: 10 YEARS
     Route: 065
     Dates: start: 20020101

REACTIONS (2)
  - PSORIASIS [None]
  - HAIR TEXTURE ABNORMAL [None]
